FAERS Safety Report 21310245 (Version 1)
Quarter: 2022Q3

REPORT INFORMATION
  Report Type: Spontaneous
  Country: GB (occurrence: GB)
  Receive Date: 20220909
  Receipt Date: 20220909
  Transmission Date: 20221027
  Serious: Yes (Hospitalization, Other)
  Sender: FDA-Public Use
  Company Number: GB-MHRA-MED-202209061215497310-LRSWF

PATIENT
  Age: 77 Year
  Sex: Female

DRUGS (2)
  1. AMBRISENTAN [Suspect]
     Active Substance: AMBRISENTAN
     Indication: Adverse drug reaction
     Dosage: 5 MG, QD
     Route: 065
     Dates: start: 20220825
  2. SILDENAFIL [Suspect]
     Active Substance: SILDENAFIL
     Indication: Adverse drug reaction
     Dosage: 25 MG, TID
     Route: 065
     Dates: start: 20170323

REACTIONS (1)
  - Spinal fracture [Unknown]
